FAERS Safety Report 7637632-3 (Version None)
Quarter: 2011Q3

REPORT INFORMATION
  Report Type: 
  Country: None (occurrence: None)
  Receive Date: 20110726
  Receipt Date: 20110725
  Transmission Date: 20111222
  Serious: Yes (Hospitalization)
  Sender: FDA-Public Use
  Company Number: FR-MERCK-1107FRA00064

PATIENT
  Age: 74 Year
  Sex: Male
  Weight: 80 kg

DRUGS (5)
  1. PERINDOPRIL [Concomitant]
     Indication: HYPERTENSION
     Route: 048
     Dates: start: 20050201
  2. CLOPIDOGREL [Concomitant]
     Route: 048
     Dates: start: 20100301
  3. REPAGLINIDE [Concomitant]
     Indication: TYPE 2 DIABETES MELLITUS
     Route: 048
     Dates: start: 20090901, end: 20100101
  4. JANUVIA [Suspect]
     Indication: TYPE 2 DIABETES MELLITUS
     Route: 048
     Dates: start: 20100301, end: 20110513
  5. REPAGLINIDE [Concomitant]
     Route: 048
     Dates: start: 20100101, end: 20110513

REACTIONS (2)
  - HYPOGLYCAEMIA [None]
  - CEREBROVASCULAR ACCIDENT [None]
